FAERS Safety Report 5043239-7 (Version None)
Quarter: 2006Q2

REPORT INFORMATION
  Report Type: 
  Country: None (occurrence: None)
  Receive Date: 20060601
  Receipt Date: 20060329
  Transmission Date: 20061013
  Serious: No
  Sender: FDA-Public Use
  Company Number: 2006PV011203

PATIENT
  Age: 49 Year
  Sex: Female

DRUGS (11)
  1. BYETTA [Suspect]
     Indication: DRUG USE FOR UNKNOWN INDICATION
     Dosage: 5 MCG; SC
     Route: 058
     Dates: start: 20060310, end: 20060312
  2. METFORMIN HYDROCHLORIDE [Concomitant]
  3. ACTOS [Concomitant]
  4. ATENOLOL [Concomitant]
  5. TYLENOL EXTRA-STRENGTH [Concomitant]
  6. LORATADINE [Concomitant]
  7. MAGNESIUM OXIDE [Concomitant]
  8. TRIAMTERENE AND HYDROCHLOROTHIAZIDE [Concomitant]
  9. LOTREL [Concomitant]
  10. ALPRAZOLAM [Concomitant]
  11. VYTORIN [Concomitant]

REACTIONS (2)
  - RASH [None]
  - URTICARIA [None]
